FAERS Safety Report 10032837 (Version 1)
Quarter: 2014Q1

REPORT INFORMATION
  Report Type: Spontaneous
  Country: GB (occurrence: GB)
  Receive Date: 20140324
  Receipt Date: 20140324
  Transmission Date: 20141002
  Serious: Yes (Hospitalization)
  Sender: FDA-Public Use
  Company Number: GB-PFIZER INC-2014081601

PATIENT
  Age: 78 Year
  Sex: Male

DRUGS (9)
  1. METHOTREXATE SODIUM [Suspect]
     Dosage: 22.5 MG, WEEKLY
     Route: 048
  2. SULFASALAZINE [Suspect]
     Dosage: UNK
  3. ALFUZOSIN [Concomitant]
     Dosage: 10 MG, 1X/DAY
  4. CALCICHEW-D3 [Concomitant]
     Dosage: UNK
  5. FERROUS GLUCONATE [Concomitant]
     Dosage: 300 MG, 3X/DAY
  6. ALENDRONIC ACID [Concomitant]
     Dosage: 70 MG, WEEKLY
  7. FOLIC ACID [Concomitant]
     Dosage: 5 MG, WEEKLY ONCE PER WEEK
  8. OMEPRAZOLE [Concomitant]
     Dosage: 20 MG, 1X/DAY EVERY MORNING
  9. SIMVASTATIN [Concomitant]
     Dosage: 20 MG, 1X/DAY AT NIGHT

REACTIONS (2)
  - Pericarditis [Recovering/Resolving]
  - Chest pain [Unknown]
